FAERS Safety Report 6257937-0 (Version None)
Quarter: 2009Q3

REPORT INFORMATION
  Report Type: 
  Country: None (occurrence: None)
  Receive Date: 20090707
  Receipt Date: 20090625
  Transmission Date: 20100115
  Serious: Yes (Hospitalization, Other)
  Sender: FDA-Public Use
  Company Number: US-ELI_LILLY_AND_COMPANY-US200906006800

PATIENT
  Sex: Female

DRUGS (4)
  1. FORTEO [Suspect]
     Indication: OSTEOPOROSIS
     Dosage: 20 UG, DAILY (1/D)
     Route: 058
     Dates: start: 20090401, end: 20090101
  2. TOPROL-XL [Concomitant]
     Dosage: 50 MG, UNK
  3. DITROPAN [Concomitant]
     Dosage: 5 MG, UNK
  4. NEXIUM [Concomitant]
     Dosage: 40 MG, UNK

REACTIONS (4)
  - BLOOD BILIRUBIN INCREASED [None]
  - CHEST PAIN [None]
  - MUSCLE SPASMS [None]
  - RENAL FAILURE [None]
